FAERS Safety Report 16241821 (Version 2)
Quarter: 2019Q2

REPORT INFORMATION
  Report Type: Spontaneous
  Country: US (occurrence: US)
  Receive Date: 20190426
  Receipt Date: 20190510
  Transmission Date: 20190711
  Serious: No
  Sender: FDA-Public Use
  Company Number: US-BIOGEN-2019BI00729395

PATIENT
  Sex: Female

DRUGS (10)
  1. AVONEX [Suspect]
     Active Substance: INTERFERON BETA-1A
     Indication: MULTIPLE SCLEROSIS
     Route: 065
     Dates: start: 20031208
  2. ACETAMIN [Concomitant]
     Active Substance: ACETAMINOPHEN
     Route: 065
  3. TIZANIDINE. [Concomitant]
     Active Substance: TIZANIDINE
     Route: 065
  4. ZETIA [Concomitant]
     Active Substance: EZETIMIBE
     Route: 065
  5. AMLODIPINE [Concomitant]
     Active Substance: AMLODIPINE BESYLATE
     Route: 065
  6. LOSARTAN POT [Concomitant]
     Active Substance: LOSARTAN POTASSIUM
     Route: 065
  7. METOPROL SUC [Concomitant]
     Route: 065
  8. AVONEX [Suspect]
     Active Substance: INTERFERON BETA-1A
     Route: 065
     Dates: start: 20180206
  9. CALCIUM [Concomitant]
     Active Substance: CALCIUM
     Route: 065
  10. ZYRTEC [Concomitant]
     Active Substance: CETIRIZINE HYDROCHLORIDE
     Route: 065

REACTIONS (2)
  - Pyrexia [Not Recovered/Not Resolved]
  - Blood pressure increased [Not Recovered/Not Resolved]
